FAERS Safety Report 7634516-1 (Version None)
Quarter: 2011Q3

REPORT INFORMATION
  Report Type: 
  Country: None (occurrence: None)
  Receive Date: 20110725
  Receipt Date: 20110721
  Transmission Date: 20111222
  Serious: Yes (Other)
  Sender: FDA-Public Use
  Company Number: BR-PFIZER INC-2011160393

PATIENT
  Age: 92 Year
  Sex: Female
  Weight: 65 kg

DRUGS (7)
  1. INDAPAMIDE [Concomitant]
     Dosage: UNK
     Dates: start: 20110201
  2. OLMESARTAN MEDOXOMIL [Suspect]
     Indication: HYPERTENSION
     Dosage: 20 MG, 1X/DAY
     Route: 048
     Dates: start: 20110204
  3. NORVASC [Suspect]
     Dosage: UNK
     Route: 048
     Dates: start: 20110201
  4. CLOPIDOGREL BISULFATE [Concomitant]
     Dosage: UNK
     Dates: start: 20110201
  5. LIPITOR [Suspect]
     Indication: BLOOD CHOLESTEROL
     Dosage: UNK
     Route: 048
     Dates: start: 20110201
  6. ASPIRIN [Concomitant]
     Dosage: UNK
     Dates: start: 20110201
  7. ANCORON [Concomitant]
     Dosage: UNK

REACTIONS (4)
  - APNOEA [None]
  - MOOD ALTERED [None]
  - AGGRESSION [None]
  - VERTIGO [None]
